FAERS Safety Report 6442904-4 (Version None)
Quarter: 2009Q4

REPORT INFORMATION
  Report Type: 
  Country: None (occurrence: None)
  Receive Date: 20091117
  Receipt Date: 20091107
  Transmission Date: 20100525
  Serious: Yes (Hospitalization, Other)
  Sender: FDA-Public Use
  Company Number: US-BAYER-200916518BCC

PATIENT
  Age: 66 Year
  Sex: Female
  Weight: 65 kg

DRUGS (3)
  1. ALKA-SELTZER EFFERVESCENT FLU [Suspect]
     Indication: INFLUENZA
     Dosage: UNIT DOSE: 1 DF
     Route: 048
     Dates: start: 20091103, end: 20091104
  2. LOVASTATIN [Concomitant]
     Dosage: UNIT DOSE: 20 MG
     Route: 065
  3. VITAMINS NOS [Concomitant]
     Route: 065

REACTIONS (5)
  - CONFUSIONAL STATE [None]
  - PARAESTHESIA [None]
  - POLLAKIURIA [None]
  - URINARY TRACT INFECTION [None]
  - URINE ANALYSIS ABNORMAL [None]
